FAERS Safety Report 8022157-6 (Version None)
Quarter: 2012Q1

REPORT INFORMATION
  Report Type: 
  Country: None (occurrence: None)
  Receive Date: 20120104
  Receipt Date: 20111226
  Transmission Date: 20120608
  Serious: Yes (Hospitalization)
  Sender: FDA-Public Use
  Company Number: BR-ASTRAZENECA-2011SE69691

PATIENT
  Age: 61 Year
  Sex: Female
  Weight: 70 kg

DRUGS (7)
  1. ATACAND HCT [Suspect]
     Indication: HYPERTENSION
     Dosage: 16/12.5 MG
     Route: 048
     Dates: start: 20110401, end: 20111001
  2. METFORMIN HCL [Concomitant]
     Indication: DIABETES MELLITUS
     Route: 048
  3. CRESTOR [Suspect]
     Indication: BLOOD CHOLESTEROL INCREASED
     Route: 048
  4. ATACAND [Suspect]
     Indication: HYPERTENSION
     Route: 048
  5. CRESTOR [Suspect]
     Route: 048
  6. INSULIN [Concomitant]
     Indication: DIABETES MELLITUS
  7. GALVUS [Concomitant]
     Indication: DIABETES MELLITUS
     Route: 048

REACTIONS (3)
  - CARDIAC DISORDER [None]
  - BLOOD PRESSURE INCREASED [None]
  - DRUG INEFFECTIVE [None]
